FAERS Safety Report 19720574 (Version 1)
Quarter: 2021Q3

REPORT INFORMATION
  Report Type: Spontaneous
  Country: US (occurrence: US)
  Receive Date: 20210819
  Receipt Date: 20210819
  Transmission Date: 20211014
  Serious: Yes (Other)
  Sender: FDA-Public Use
  Company Number: US-SA-2021SA272213

PATIENT
  Age: 58 Year
  Sex: Female

DRUGS (15)
  1. FLUDROCORTISONE ACETATE. [Concomitant]
     Active Substance: FLUDROCORTISONE ACETATE
  2. COPAXONE [Concomitant]
     Active Substance: GLATIRAMER ACETATE
  3. LANTUS [Concomitant]
     Active Substance: INSULIN GLARGINE
  4. LEVOTHYROXINE SODIUM. [Concomitant]
     Active Substance: LEVOTHYROXINE SODIUM
  5. IBUPROFEN. [Concomitant]
     Active Substance: IBUPROFEN
  6. HUMALOG [Concomitant]
     Active Substance: INSULIN LISPRO
  7. ALPRAZOLAM. [Concomitant]
     Active Substance: ALPRAZOLAM
  8. METOCLOPRAMIDE HCL [Concomitant]
     Active Substance: METOCLOPRAMIDE HYDROCHLORIDE
  9. HYDROCODONE BITARTRATE. [Concomitant]
     Active Substance: HYDROCODONE BITARTRATE
  10. CLINDAMYCIN HCL [Concomitant]
     Active Substance: CLINDAMYCIN HYDROCHLORIDE
  11. SYNTHROID [Concomitant]
     Active Substance: LEVOTHYROXINE SODIUM
  12. HYDROCORTISONE. [Concomitant]
     Active Substance: HYDROCORTISONE
  13. AUBAGIO [Suspect]
     Active Substance: TERIFLUNOMIDE
     Indication: MULTIPLE SCLEROSIS
     Route: 048
  14. NAPROXEN. [Concomitant]
     Active Substance: NAPROXEN
  15. LEVOXYL [Concomitant]
     Active Substance: LEVOTHYROXINE SODIUM

REACTIONS (5)
  - Decreased appetite [Unknown]
  - Cough [Unknown]
  - Liver disorder [Unknown]
  - Abdominal pain upper [Unknown]
  - Haemorrhagic disorder [Unknown]
